FAERS Safety Report 4726922-X (Version None)
Quarter: 2005Q3

REPORT INFORMATION
  Report Type: 
  Country: None (occurrence: None)
  Receive Date: 20050726
  Receipt Date: 20050707
  Transmission Date: 20060218
  Serious: Yes (Disabling)
  Sender: FDA-Public Use
  Company Number: ENTC2005-0196

PATIENT
  Age: 70 Year
  Sex: Female

DRUGS (6)
  1. STALEVO 100 [Suspect]
     Indication: PARKINSON'S DISEASE
     Dosage: 600 MG (150 MG, 4 IN 1 D) ORAL
     Route: 048
  2. COMTESS (ENTACAPONE) [Suspect]
     Indication: PARKINSON'S DISEASE
     Dosage: 800 MG (200 MG, 4 IN 1 D) ORAL
     Route: 048
     Dates: start: 20000601
  3. SINEMET CR [Suspect]
     Indication: PARKINSON'S DISEASE
     Dosage: 1 TABLET
     Dates: start: 20000601
  4. SINEMET [Suspect]
     Indication: PARKINSON'S DISEASE
     Dosage: 125 MG ORAL
     Route: 048
     Dates: start: 20000601
  5. MIRTAZAPINE [Concomitant]
  6. TAMOXIFEN [Concomitant]

REACTIONS (4)
  - DRUG INEFFECTIVE [None]
  - DYSPHAGIA [None]
  - HYPERVENTILATION [None]
  - THERAPY NON-RESPONDER [None]
